FAERS Safety Report 8815074 (Version 1)
Quarter: 2012Q4

REPORT INFORMATION
  Report Type: Report from Study
  Country: GR (occurrence: GR)
  Receive Date: 20120928
  Receipt Date: 20120928
  Transmission Date: 20130627
  Serious: Yes (Death)
  Sender: FDA-Public Use
  Company Number: GR-ABBOTT-12P-066-0985780-00

PATIENT
  Age: 77 Year
  Sex: Female
  Weight: 46 kg

DRUGS (5)
  1. ZEMPLAR [Suspect]
     Indication: HYPERPARATHYROIDISM SECONDARY
     Dosage: 5mcg three times per week
     Route: 042
     Dates: start: 20110818, end: 20120826
  2. FUROSEMIDE [Concomitant]
     Indication: CARDIAC FAILURE
     Dosage: 1/4 tab twice daily
     Route: 048
     Dates: start: 20110818, end: 20120826
  3. OMEPRAZOLE [Concomitant]
     Indication: ABDOMINAL PAIN UPPER
     Route: 048
     Dates: start: 20110818, end: 20120826
  4. ALLOPURINOL [Concomitant]
     Indication: HYPERURICAEMIA
     Route: 048
     Dates: start: 20110818, end: 20120826
  5. DILTIAZEM [Concomitant]
     Indication: CARDIAC FAILURE
     Route: 048
     Dates: start: 20110818, end: 20120826

REACTIONS (1)
  - Cardiac arrest [Fatal]
